FAERS Safety Report 5914163-X (Version None)
Quarter: 2008Q4

REPORT INFORMATION
  Report Type: 
  Country: None (occurrence: None)
  Receive Date: 20081009
  Receipt Date: 20081001
  Transmission Date: 20090506
  Serious: Yes (Other)
  Sender: FDA-Public Use
  Company Number: US-GENENTECH-268803

PATIENT
  Sex: Female
  Weight: 61.678 kg

DRUGS (6)
  1. AVASTIN [Suspect]
     Indication: OVARIAN CANCER
     Dosage: 15 MG/KG, DAYS 1+15
     Dates: start: 20080519
  2. CARBOPLATIN [Concomitant]
     Indication: DRUG USE FOR UNKNOWN INDICATION
     Dosage: 4 AUC, UNK
     Dates: start: 20080728
  3. GEMZAR [Concomitant]
     Indication: DRUG USE FOR UNKNOWN INDICATION
     Dosage: 600 MG/M2, UNK
     Dates: start: 20080811
  4. FIORINAL [Concomitant]
     Indication: MIGRAINE
     Dosage: 1 UNK, PRN
     Route: 048
  5. ZOFRAN [Concomitant]
     Indication: NAUSEA
     Dosage: 8 MG, PRN
     Route: 048
  6. LUNESTA [Concomitant]
     Indication: INSOMNIA
     Dosage: 1 UNK, PRN
     Route: 048

REACTIONS (2)
  - FURUNCLE [None]
  - SKIN NODULE [None]
